FAERS Safety Report 5049395-9 (Version None)
Quarter: 2006Q3

REPORT INFORMATION
  Report Type: 
  Country: None (occurrence: None)
  Receive Date: 20060706
  Receipt Date: 20060629
  Transmission Date: 20061208
  Serious: Yes (Hospitalization)
  Sender: FDA-Public Use
  Company Number: 200610486BVD

PATIENT
  Age: 68 Year
  Sex: Female

DRUGS (1)
  1. SORAFENIB [Suspect]
     Indication: METASTATIC RENAL CELL CARCINOMA
     Dosage: 400 MG, BID, ORAL
     Route: 048
     Dates: start: 20060117

REACTIONS (7)
  - AORTIC DISORDER [None]
  - DEEP VEIN THROMBOSIS [None]
  - MASS [None]
  - NEOPLASM PROGRESSION [None]
  - RENAL CELL CARCINOMA STAGE UNSPECIFIED [None]
  - THROMBOSIS [None]
  - VENOUS STENOSIS [None]
